FAERS Safety Report 25986596 (Version 1)
Quarter: 2025Q4

REPORT INFORMATION
  Report Type: Spontaneous
  Country: US (occurrence: US)
  Receive Date: 20251101
  Receipt Date: 20251101
  Transmission Date: 20260118
  Serious: Yes (Life-Threatening, Hospitalization, Other)
  Sender: AAVIS PHARMACEUTICALS
  Company Number: US-AVS-000253

PATIENT
  Age: 64 Year
  Sex: Female

DRUGS (1)
  1. RAMIPRIL [Suspect]
     Active Substance: RAMIPRIL
     Indication: Hypertension
     Route: 065

REACTIONS (7)
  - Overdose [Unknown]
  - Acute kidney injury [Not Recovered/Not Resolved]
  - Liver injury [Recovered/Resolved]
  - Distributive shock [Unknown]
  - Pneumatosis intestinalis [Unknown]
  - Hypotension [Recovered/Resolved]
  - Peritonitis [Unknown]
